FAERS Safety Report 8180566-9 (Version None)
Quarter: 2012Q1

REPORT INFORMATION
  Report Type: 
  Country: None (occurrence: None)
  Receive Date: 20120302
  Receipt Date: 20120227
  Transmission Date: 20120608
  Serious: Yes (Other)
  Sender: FDA-Public Use
  Company Number: US-PFIZER INC-2011214335

PATIENT
  Sex: Male

DRUGS (1)
  1. SUTENT [Suspect]
     Indication: METASTATIC RENAL CELL CARCINOMA
     Dosage: 50 MG, 1X/DAY, CYCLE 4 WEEKS ON AND 2 OFF
     Dates: start: 20110908

REACTIONS (7)
  - SWOLLEN TONGUE [None]
  - INFLUENZA LIKE ILLNESS [None]
  - DYSGEUSIA [None]
  - FATIGUE [None]
  - DRUG HYPERSENSITIVITY [None]
  - GLOSSODYNIA [None]
  - NAUSEA [None]
